FAERS Safety Report 21907137 (Version 2)
Quarter: 2023Q1

REPORT INFORMATION
  Report Type: Spontaneous
  Country: US (occurrence: US)
  Receive Date: 20230125
  Receipt Date: 20230322
  Transmission Date: 20230417
  Serious: No
  Sender: FDA-Public Use
  Company Number: US-BRISTOL-MYERS SQUIBB COMPANY-2023-010722

PATIENT
  Age: 66 Year
  Sex: Female

DRUGS (2)
  1. SPRYCEL [Suspect]
     Active Substance: DASATINIB
     Indication: Chronic myeloid leukaemia
     Route: 048
     Dates: start: 202202
  2. SPRYCEL [Suspect]
     Active Substance: DASATINIB
     Dosage: IN FEBRUARY
     Route: 048

REACTIONS (3)
  - Diarrhoea [Unknown]
  - Pancreatic enlargement [Unknown]
  - Lipase increased [Unknown]

NARRATIVE: CASE EVENT DATE: 20230101
